FAERS Safety Report 4491939-X (Version None)
Quarter: 2004Q4

REPORT INFORMATION
  Report Type: 
  Country: None (occurrence: None)
  Receive Date: 20041029
  Receipt Date: 20041029
  Transmission Date: 20050328
  Serious: Yes (Hospitalization)
  Sender: FDA-Public Use
  Company Number: None

PATIENT
  Age: 76 Year
  Sex: Female

DRUGS (1)
  1. ZOMETA [Suspect]

REACTIONS (5)
  - ABSCESS [None]
  - FISTULA [None]
  - OSTEONECROSIS [None]
  - PAIN [None]
  - WOUND DRAINAGE [None]
